FAERS Safety Report 19252979 (Version 1)
Quarter: 2021Q2

REPORT INFORMATION
  Report Type: Spontaneous
  Country: US (occurrence: US)
  Receive Date: 20210513
  Receipt Date: 20210513
  Transmission Date: 20210717
  Serious: No
  Sender: FDA-Public Use
  Company Number: US-UCBSA-2020014745

PATIENT
  Sex: Female

DRUGS (7)
  1. VOLTAREN [DICLOFENAC] [Concomitant]
     Active Substance: DICLOFENAC SODIUM
  2. ALBUTEROL [SALBUTAMOL] [Concomitant]
     Active Substance: ALBUTEROL
  3. CIMZIA [Suspect]
     Active Substance: CERTOLIZUMAB PEGOL
     Indication: PSORIATIC ARTHROPATHY
     Dosage: 400 MILLIGRAM, EV 4 WEEKS
     Route: 058
     Dates: start: 201906
  4. VITAMIN D NOS [Concomitant]
     Active Substance: VITAMIN D NOS
  5. CLOBETASOL [Concomitant]
     Active Substance: CLOBETASOL
  6. FLUOCINOLONE [Concomitant]
     Active Substance: FLUOCINOLONE
  7. CIMZIA [Suspect]
     Active Substance: CERTOLIZUMAB PEGOL
     Indication: OSTEOARTHRITIS

REACTIONS (1)
  - Arthralgia [Not Recovered/Not Resolved]
